FAERS Safety Report 18219851 (Version 1)
Quarter: 2020Q3

REPORT INFORMATION
  Report Type: Spontaneous
  Country: SE (occurrence: SE)
  Receive Date: 20200901
  Receipt Date: 20200901
  Transmission Date: 20201103
  Serious: Yes (Death, Hospitalization)
  Sender: FDA-Public Use
  Company Number: SE-ROCHE-2667299

PATIENT
  Age: 56 Year
  Sex: Female

DRUGS (8)
  1. TAXOTERE [Suspect]
     Active Substance: DOCETAXEL
     Indication: BREAST CANCER FEMALE
     Route: 065
     Dates: end: 200803
  2. HYDROCORTISONE ACETATE;NEOMYCIN SULFATE [Concomitant]
  3. BETAPRED [Concomitant]
     Active Substance: BETAMETHASONE SODIUM PHOSPHATE
     Route: 065
  4. OMEPRAZOLE. [Concomitant]
     Active Substance: OMEPRAZOLE
  5. FLUCONAZOL [Suspect]
     Active Substance: FLUCONAZOLE
     Indication: STOMATITIS
     Route: 048
     Dates: start: 20080306
  6. NOLVADEX [Concomitant]
     Active Substance: TAMOXIFEN CITRATE
  7. XELODA [Suspect]
     Active Substance: CAPECITABINE
     Indication: BREAST CANCER FEMALE
     Route: 048
     Dates: start: 20080225, end: 20080306
  8. CIPROFLOXACIN HYDROCHLORIDE MONOHYDRATE [Concomitant]
     Active Substance: CIPROFLOXACIN HYDROCHLORIDE
     Route: 065

REACTIONS (5)
  - Oedema [Unknown]
  - Jaundice [Unknown]
  - Blood albumin decreased [Unknown]
  - Transaminases increased [Unknown]
  - Hepatic cirrhosis [Fatal]

NARRATIVE: CASE EVENT DATE: 200804
